FAERS Safety Report 20503134 (Version 1)
Quarter: 2022Q1

REPORT INFORMATION
  Report Type: Report from Study
  Country: DE (occurrence: DE)
  Receive Date: 20220222
  Receipt Date: 20220222
  Transmission Date: 20220423
  Serious: Yes (Other)
  Sender: FDA-Public Use
  Company Number: DE-AMGEN-DEUNI2022030072

PATIENT
  Age: 62 Year
  Sex: Female
  Weight: 86 kg

DRUGS (4)
  1. CARFILZOMIB [Suspect]
     Active Substance: CARFILZOMIB
     Indication: Plasma cell myeloma
     Dosage: 109.76 MILLIGRAM
     Route: 065
     Dates: start: 20210615
  2. CARFILZOMIB [Suspect]
     Active Substance: CARFILZOMIB
     Dosage: 108 MILLIGRAM
     Route: 065
     Dates: end: 20210804
  3. ISATUXIMAB [Suspect]
     Active Substance: ISATUXIMAB
     Indication: Plasma cell myeloma
     Dosage: 895 MILLIGRAM
     Route: 065
     Dates: start: 20210614
  4. ISATUXIMAB [Suspect]
     Active Substance: ISATUXIMAB
     Dosage: 870 MILLIGRAM
     Route: 065

REACTIONS (1)
  - Polyneuropathy [Recovering/Resolving]

NARRATIVE: CASE EVENT DATE: 20210817
